FAERS Safety Report 7097137-8 (Version None)
Quarter: 2010Q4

REPORT INFORMATION
  Report Type: 
  Country: None (occurrence: None)
  Receive Date: 20101111
  Receipt Date: 20101105
  Transmission Date: 20110411
  Serious: Yes (Hospitalization)
  Sender: FDA-Public Use
  Company Number: DE-CEPHALON-2010004121

PATIENT
  Sex: Male
  Weight: 88 kg

DRUGS (6)
  1. TREANDA [Suspect]
     Indication: NON-HODGKIN'S LYMPHOMA
     Route: 042
     Dates: start: 20060516, end: 20060519
  2. TREANDA [Suspect]
     Route: 041
     Dates: start: 20060626, end: 20060627
  3. TREANDA [Suspect]
     Route: 041
     Dates: start: 20060724, end: 20060725
  4. RITUXIMAB [Suspect]
     Indication: NON-HODGKIN'S LYMPHOMA
     Dates: start: 20060516, end: 20060519
  5. RITUXIMAB [Suspect]
     Dates: start: 20060626, end: 20060627
  6. RITUXIMAB [Suspect]
     Dates: start: 20060724, end: 20060725

REACTIONS (1)
  - PULMONARY EMBOLISM [None]
